FAERS Safety Report 5815291-X (Version None)
Quarter: 2008Q3

REPORT INFORMATION
  Report Type: 
  Country: None (occurrence: None)
  Receive Date: 20080718
  Receipt Date: 20080704
  Transmission Date: 20090109
  Serious: Yes (Other)
  Sender: FDA-Public Use
  Company Number: PHHY2008FR10477

PATIENT
  Sex: Female

DRUGS (2)
  1. TASIGNA [Suspect]
     Indication: CHRONIC MYELOID LEUKAEMIA
     Dosage: 400 MG, BID
     Route: 048
     Dates: start: 20080401, end: 20080501
  2. XYZAL [Concomitant]

REACTIONS (11)
  - BLOOD BILIRUBIN INCREASED [None]
  - CYANOSIS [None]
  - CYTOLYTIC HEPATITIS [None]
  - ERYTHROMELALGIA [None]
  - EXERCISE TOLERANCE DECREASED [None]
  - JAUNDICE [None]
  - LIVER FUNCTION TEST ABNORMAL [None]
  - OCULAR ICTERUS [None]
  - PERICARDIAL EFFUSION [None]
  - PRURITUS [None]
  - RASH MACULO-PAPULAR [None]
